FAERS Safety Report 9295987 (Version 2)
Quarter: 2013Q2

REPORT INFORMATION
  Report Type: Spontaneous
  Country: GB (occurrence: None)
  Receive Date: 20130514
  Receipt Date: 20130514
  Transmission Date: 20140414
  Serious: Yes (Other)
  Sender: FDA-Public Use
  Company Number: AUR-APL-2013-03742

PATIENT
  Age: 47 Year
  Sex: Male
  Weight: 81.1 kg

DRUGS (2)
  1. AMOXICILLIN [Suspect]
     Indication: UPPER RESPIRATORY TRACT INFECTION
     Dates: start: 20130413
  2. CLARITHROMYCIN [Concomitant]

REACTIONS (3)
  - Rash [None]
  - Rash erythematous [None]
  - Rash [None]
